FAERS Safety Report 5184605-9 (Version None)
Quarter: 2006Q4

REPORT INFORMATION
  Report Type: 
  Country: None (occurrence: None)
  Receive Date: 20061220
  Receipt Date: 20060320
  Transmission Date: 20070319
  Serious: No
  Sender: FDA-Public Use
  Company Number: US-GLAXOSMITHKLINE-A0598153A

PATIENT
  Age: 56 Year
  Sex: Female

DRUGS (2)
  1. NICODERM CQ [Suspect]
     Dates: start: 20060222, end: 20060322
  2. NICODERM CQ [Suspect]
     Dates: start: 20060322

REACTIONS (7)
  - ABDOMINAL PAIN UPPER [None]
  - APPLICATION SITE ERYTHEMA [None]
  - APPLICATION SITE IRRITATION [None]
  - APPLICATION SITE PRURITUS [None]
  - DIZZINESS [None]
  - RHINORRHOEA [None]
  - SPUTUM DISCOLOURED [None]
